FAERS Safety Report 17557473 (Version 2)
Quarter: 2020Q3

REPORT INFORMATION
  Report Type: Report from Study
  Country: CA (occurrence: CA)
  Receive Date: 20200318
  Receipt Date: 20200817
  Transmission Date: 20201102
  Serious: Yes (Other)
  Sender: FDA-Public Use
  Company Number: CA-JNJFOC-20200311760

PATIENT
  Age: 68 Year
  Sex: Female
  Weight: 40.7 kg

DRUGS (2)
  1. REMICADE [Suspect]
     Active Substance: INFLIXIMAB
     Route: 042
  2. REMICADE [Suspect]
     Active Substance: INFLIXIMAB
     Indication: CROHN^S DISEASE
     Dosage: LAST INFUSION RECEIVED ON 25?JUN?2020
     Route: 042

REACTIONS (6)
  - Dementia Alzheimer^s type [Not Recovered/Not Resolved]
  - Haemorrhoids [Unknown]
  - Brain neoplasm [Unknown]
  - Frequent bowel movements [Not Recovered/Not Resolved]
  - Limb injury [Unknown]
  - Anal incontinence [Recovering/Resolving]

NARRATIVE: CASE EVENT DATE: 202002
